FAERS Safety Report 8614586-4 (Version None)
Quarter: 2012Q3

REPORT INFORMATION
  Report Type: 
  Country: None (occurrence: None)
  Receive Date: 20120809
  Receipt Date: 20120731
  Transmission Date: 20120928
  Serious: Yes (Other)
  Sender: FDA-Public Use
  Company Number: 218362

PATIENT
  Sex: Female

DRUGS (1)
  1. DAIVOBET OINTMENT (DAIVOBET [Suspect]
     Indication: PSORIASIS

REACTIONS (3)
  - BACK PAIN [None]
  - LIP BLISTER [None]
  - CONVULSION [None]
